FAERS Safety Report 5010989-8 (Version None)
Quarter: 2006Q2

REPORT INFORMATION
  Report Type: 
  Country: None (occurrence: None)
  Receive Date: 20060523
  Receipt Date: 20060515
  Transmission Date: 20061013
  Serious: Yes (Hospitalization)
  Sender: FDA-Public Use
  Company Number: GBWYE623915MAY06

PATIENT
  Sex: Female

DRUGS (3)
  1. EFFEXOR XR [Suspect]
     Dosage: 225 MG 1X PER 1 DAY
     Route: 048
  2. EFFEXOR XR [Suspect]
     Dosage: 225 MG 1X PER 1 DAY
     Route: 048
     Dates: start: 20060301
  3. RISPERIDONE [Concomitant]

REACTIONS (2)
  - ATRIAL FLUTTER [None]
  - GASTROINTESTINAL HAEMORRHAGE [None]
